FAERS Safety Report 9228022 (Version 8)
Quarter: 2014Q3

REPORT INFORMATION
  Report Type: Report from Study
  Country: HU (occurrence: HU)
  Receive Date: 20130412
  Receipt Date: 20140724
  Transmission Date: 20150326
  Serious: Yes (Hospitalization, Other)
  Sender: FDA-Public Use
  Company Number: HU-ROCHE-1178134

PATIENT
  Age: 54 Year
  Sex: Female

DRUGS (5)
  1. XELODA [Suspect]
     Active Substance: CAPECITABINE
     Indication: GASTRIC CANCER
     Route: 048
     Dates: start: 20130103, end: 20130310
  2. CISPLATIN. [Concomitant]
     Active Substance: CISPLATIN
  3. XELODA [Suspect]
     Active Substance: CAPECITABINE
     Route: 048
     Dates: start: 20130425, end: 20130506
  4. XELODA [Suspect]
     Active Substance: CAPECITABINE
     Route: 048
     Dates: end: 20130717
  5. XELODA [Suspect]
     Active Substance: CAPECITABINE
     Dosage: DOSE REDUCED.?THERAPY WAS SUSPENDED BETWEEN 28/MAR/2013 AND 25/APR/2013.
     Route: 048
     Dates: start: 20130312, end: 201304

REACTIONS (11)
  - Palmar-plantar erythrodysaesthesia syndrome [Not Recovered/Not Resolved]
  - Dizziness [Unknown]
  - Nausea [Unknown]
  - Diarrhoea [Not Recovered/Not Resolved]
  - Asthenia [Unknown]
  - Decreased appetite [Unknown]
  - Thrombosis [Recovering/Resolving]
  - Stomatitis [Unknown]
  - Peripheral swelling [Unknown]
  - Fall [Unknown]
  - Blood potassium abnormal [Unknown]

NARRATIVE: CASE EVENT DATE: 20130307
